FAERS Safety Report 6303948-6 (Version None)
Quarter: 2009Q3

REPORT INFORMATION
  Report Type: 
  Country: None (occurrence: None)
  Receive Date: 20090805
  Receipt Date: 20090724
  Transmission Date: 20100115
  Serious: Yes (Hospitalization, Other)
  Sender: FDA-Public Use
  Company Number: 220002M09FRA

PATIENT
  Age: 11 Year
  Sex: Male
  Weight: 33.8 kg

DRUGS (2)
  1. SAIZEN [Suspect]
     Indication: BLOOD GROWTH HORMONE DECREASED
     Dosage: 1.26 MG, 1 IN 1 DAYS, SUBCUTANEOUS
     Route: 058
     Dates: start: 20031202, end: 20090225
  2. SAIZEN [Suspect]
     Indication: FOETAL GROWTH RETARDATION
     Dosage: 1.26 MG, 1 IN 1 DAYS, SUBCUTANEOUS
     Route: 058
     Dates: start: 20031202, end: 20090225

REACTIONS (10)
  - ANXIETY [None]
  - ASTHENIA [None]
  - HEADACHE [None]
  - LIP DRY [None]
  - PAIN [None]
  - PALLOR [None]
  - SYNCOPE [None]
  - TYPE 1 DIABETES MELLITUS [None]
  - VOMITING [None]
  - WEIGHT DECREASED [None]
